FAERS Safety Report 5070061-8 (Version None)
Quarter: 2006Q3

REPORT INFORMATION
  Report Type: 
  Country: None (occurrence: None)
  Receive Date: 20060731
  Receipt Date: 20060717
  Transmission Date: 20061208
  Serious: Yes (Disabling)
  Sender: FDA-Public Use
  Company Number: 111548ISR

PATIENT
  Age: 51 Year
  Sex: Female

DRUGS (4)
  1. FLUOROURACIL [Suspect]
     Indication: BREAST CANCER
     Route: 042
     Dates: start: 20051118, end: 20060324
  2. CYCLOPHOSPHAMIDE [Suspect]
     Indication: BREAST CANCER
     Dates: start: 20051118, end: 20060324
  3. EPIRUBICIN [Suspect]
     Indication: BREAST CANCER
     Route: 042
     Dates: start: 20051118, end: 20060324
  4. PAS D'AMM (RADIOTHERAPY) [Suspect]
     Dates: start: 20060426, end: 20060530

REACTIONS (4)
  - BREAST CANCER FEMALE [None]
  - CARDIAC DISORDER [None]
  - ECHOGRAPHY ABNORMAL [None]
  - EJECTION FRACTION DECREASED [None]
